FAERS Safety Report 9536770 (Version 3)
Quarter: 2013Q4

REPORT INFORMATION
  Report Type: Spontaneous
  Country: FR (occurrence: FR)
  Receive Date: 20130919
  Receipt Date: 20131206
  Transmission Date: 20140711
  Serious: Yes (Hospitalization)
  Sender: FDA-Public Use
  Company Number: FR-PFIZER INC-2013263757

PATIENT
  Age: 56 Year
  Sex: Male

DRUGS (10)
  1. TYGACIL [Suspect]
     Indication: OSTEITIS
     Dosage: UNK
     Route: 042
     Dates: start: 20090501, end: 20090508
  2. TYGACIL [Suspect]
     Dosage: 50 MG, 2X/DAY
     Route: 042
     Dates: start: 20090509, end: 20090512
  3. VANCOMYCINE [Suspect]
     Dosage: UNK
     Dates: start: 20090426, end: 20090508
  4. PARACETAMOL [Suspect]
     Dosage: 4 G/DAY
     Dates: start: 200905, end: 200905
  5. ESOMEPRAZOLE [Concomitant]
  6. PREGABALIN [Concomitant]
  7. METFORMIN [Concomitant]
  8. ROSUVASTATIN [Concomitant]
  9. HYDROCHLOROTHIAZIDE [Concomitant]
  10. METRONIDAZOLE [Concomitant]
     Indication: OSTEITIS
     Dosage: UNK
     Dates: start: 20090427, end: 20090429

REACTIONS (5)
  - Jaundice cholestatic [Recovered/Resolved]
  - Hepatic failure [Recovered/Resolved with Sequelae]
  - Coagulation factor decreased [Recovered/Resolved]
  - Thrombocytopenia [Recovered/Resolved]
  - Off label use [Unknown]
